FAERS Safety Report 9418881 (Version 1)
Quarter: 2013Q3

REPORT INFORMATION
  Report Type: Spontaneous
  Country: US (occurrence: US)
  Receive Date: 20130725
  Receipt Date: 20130725
  Transmission Date: 20140515
  Serious: No
  Sender: FDA-Public Use
  Company Number: US-BAYER-2013-089912

PATIENT
  Age: 65 Year
  Sex: Male
  Weight: 79 kg

DRUGS (4)
  1. ALEVE CAPLET [Suspect]
     Indication: SWELLING
     Dosage: 2 DF, BID
     Route: 048
     Dates: start: 20130717
  2. KLONOPIN [Concomitant]
  3. NUVIGIL [Concomitant]
  4. LYSINE [Concomitant]

REACTIONS (1)
  - Pre-existing condition improved [None]
